FAERS Safety Report 5200887-9 (Version None)
Quarter: 2007Q1

REPORT INFORMATION
  Report Type: 
  Country: None (occurrence: None)
  Receive Date: 20070108
  Receipt Date: 20070102
  Transmission Date: 20070707
  Serious: No
  Sender: FDA-Public Use
  Company Number: BEWYE944618SEP06

PATIENT
  Age: 18 Year
  Sex: Female
  Weight: 68 kg

DRUGS (1)
  1. ENBREL [Suspect]
     Indication: JUVENILE ARTHRITIS
     Route: 058
     Dates: start: 20031201

REACTIONS (1)
  - IRITIS [None]
